FAERS Safety Report 15789018 (Version 1)
Quarter: 2019Q1

REPORT INFORMATION
  Report Type: Spontaneous
  Country: CH (occurrence: CH)
  Receive Date: 20190104
  Receipt Date: 20190104
  Transmission Date: 20190417
  Serious: Yes (Other)
  Sender: FDA-Public Use
  Company Number: CH-BAYER-2019-000547

PATIENT
  Age: 85 Year
  Sex: Male

DRUGS (17)
  1. CALCIUMACETAT [Concomitant]
     Active Substance: CALCIUM ACETATE
     Dosage: 1200 MG, TID
  2. RENAGEL [Concomitant]
     Active Substance: SEVELAMER HYDROCHLORIDE
     Dosage: 1600 MG, TID
  3. CALCITRIOL SALMON PHARMA [Concomitant]
     Dosage: 0.25 ?G, QD
  4. VI-DE 3 [Concomitant]
     Active Substance: CHOLECALCIFEROL
     Dosage: 20 GTT, AFTER EACH DIALYSIS
     Route: 048
  5. MIMPARA [Concomitant]
     Active Substance: CINACALCET HYDROCHLORIDE
     Dosage: 1 DF, BID (0-15 MG-30MG)
  6. FERINJECT [Concomitant]
     Active Substance: FERRIC CARBOXYMALTOSE
     Dosage: 1 DF (100MG/2ML)
  7. EPOETIN [Concomitant]
     Active Substance: ERYTHROPOIETIN
     Dosage: 4000 IU /O.4 ML ON MONDAY,WEDNESDAY AND FRIDAY
  8. METOLAZON [Concomitant]
     Active Substance: METOLAZONE
     Dosage: 5 MG, BID
  9. ASPIRIN CARDIO [Concomitant]
     Active Substance: ASPIRIN
     Dosage: 100 MG, QD
     Route: 048
  10. SORTIS [Concomitant]
     Active Substance: ATORVASTATIN
     Dosage: 20 MG, QD
  11. TOREM [TORASEMIDE] [Concomitant]
     Active Substance: TORSEMIDE
     Dosage: 200 MG, BID
  12. TRIATEC [RAMIPRIL] [Concomitant]
     Active Substance: RAMIPRIL
     Dosage: 5 MG, QD
  13. AVALOX [Suspect]
     Active Substance: MOXIFLOXACIN HYDROCHLORIDE
     Indication: BACTERIAL INFECTION
     Dosage: 400 MG, QD
     Dates: start: 20181114
  14. PANTOPRAZOLE [Concomitant]
     Active Substance: PANTOPRAZOLE
     Dosage: 40 MG, BID
  15. DIALVIT [Concomitant]
     Dosage: 1 DF AFTER EACH DIALYSIS
     Route: 048
  16. METO ZEROK [Concomitant]
     Active Substance: METOPROLOL SUCCINATE
     Dosage: 50 MG, TID
  17. FOSRENOL [Concomitant]
     Active Substance: LANTHANUM CARBONATE
     Dosage: 1000 MG, TID

REACTIONS (1)
  - C-reactive protein increased [Unknown]

NARRATIVE: CASE EVENT DATE: 201811
